FAERS Safety Report 9714195 (Version 1)
Quarter: 2013Q4

REPORT INFORMATION
  Report Type: Spontaneous
  Country: US (occurrence: US)
  Receive Date: 20131126
  Receipt Date: 20131126
  Transmission Date: 20140711
  Serious: No
  Sender: FDA-Public Use
  Company Number: US-GILEAD-2008-0019275

PATIENT
  Sex: Female
  Weight: 106.59 kg

DRUGS (10)
  1. LETAIRIS [Suspect]
     Indication: PULMONARY ARTERIAL HYPERTENSION
     Route: 048
  2. AMITRIPTYLINE [Concomitant]
  3. GLIPIZIDE [Concomitant]
  4. METFORMIN [Concomitant]
  5. IRON [Concomitant]
  6. POTASSIUM CL [Concomitant]
  7. MORPHINE [Concomitant]
  8. SPIRIVA [Concomitant]
  9. ASPIRIN [Concomitant]
  10. VYTORIN [Concomitant]

REACTIONS (3)
  - Dyspnoea [None]
  - Flushing [None]
  - Local swelling [None]
